FAERS Safety Report 18218216 (Version 1)
Quarter: 2020Q3

REPORT INFORMATION
  Report Type: Spontaneous
  Country: US (occurrence: US)
  Receive Date: 20200831
  Receipt Date: 20200831
  Transmission Date: 20201103
  Serious: Yes (Death, Hospitalization)
  Sender: FDA-Public Use
  Company Number: None

PATIENT
  Age: 57 Year
  Sex: Female
  Weight: 92.53 kg

DRUGS (1)
  1. ERIBULIN (ERIBULIN MESYLATE 0.5MG/ML INJ, SOLN, 2ML) [Suspect]
     Active Substance: ERIBULIN MESYLATE
     Indication: BREAST CANCER METASTATIC
     Route: 042
     Dates: start: 20200521, end: 20200521

REACTIONS (11)
  - Oropharyngeal pain [None]
  - Hepatic function abnormal [None]
  - Hypophagia [None]
  - Lactic acidosis [None]
  - Hepatotoxicity [None]
  - Mucosal inflammation [None]
  - Neutropenia [None]
  - Acute kidney injury [None]
  - Mental impairment [None]
  - Hepatic failure [None]
  - Oral pain [None]

NARRATIVE: CASE EVENT DATE: 20200528
